FAERS Safety Report 7493382-8 (Version None)
Quarter: 2011Q2

REPORT INFORMATION
  Report Type: 
  Country: None (occurrence: None)
  Receive Date: 20110520
  Receipt Date: 20110512
  Transmission Date: 20111010
  Serious: Yes (Hospitalization, Other)
  Sender: FDA-Public Use
  Company Number: AT-AMGEN-AUTSP2011025622

PATIENT
  Age: 35 Year
  Sex: Female

DRUGS (2)
  1. ENBREL [Suspect]
     Indication: RHEUMATOID ARTHRITIS
     Dosage: 50 MG, WEEKLY
     Dates: start: 20110401
  2. METHOTREXAT                        /00113801/ [Concomitant]
     Dosage: 20 MG, WEEKLY
     Dates: start: 20110401

REACTIONS (7)
  - PALPITATIONS [None]
  - SYSTEMIC LUPUS ERYTHEMATOSUS [None]
  - CHEST PAIN [None]
  - DYSPNOEA [None]
  - INJECTION SITE SWELLING [None]
  - FATIGUE [None]
  - INJECTION SITE REACTION [None]
